FAERS Safety Report 4862580-1 (Version None)
Quarter: 2005Q4

REPORT INFORMATION
  Report Type: 
  Country: None (occurrence: None)
  Receive Date: 20051221
  Receipt Date: 20050422
  Transmission Date: 20060501
  Serious: Yes (Disabling)
  Sender: FDA-Public Use
  Company Number: PHEH2005US04707

PATIENT
  Age: 45 Year
  Sex: Male

DRUGS (1)
  1. TRILEPTAL [Suspect]
     Dosage: 750 MG, QD
     Route: 048
     Dates: start: 20030828, end: 20051130

REACTIONS (1)
  - RETINAL VEIN OCCLUSION [None]
